FAERS Safety Report 7588465-8 (Version None)
Quarter: 2011Q2

REPORT INFORMATION
  Report Type: 
  Country: None (occurrence: None)
  Receive Date: 20110627
  Receipt Date: 20100908
  Transmission Date: 20111010
  Serious: Yes (Hospitalization, Other)
  Sender: FDA-Public Use
  Company Number: CR10-0291

PATIENT
  Sex: Male

DRUGS (1)
  1. PRIMATENE MIST [Suspect]

REACTIONS (2)
  - ASTHMA [None]
  - DEVICE MALFUNCTION [None]
